FAERS Safety Report 21067667 (Version 2)
Quarter: 2022Q3

REPORT INFORMATION
  Report Type: Spontaneous
  Country: US (occurrence: US)
  Receive Date: 20220712
  Receipt Date: 20220901
  Transmission Date: 20221027
  Serious: No
  Sender: FDA-Public Use
  Company Number: US-GSKCCFUS-Case-01429858_AE-82122

PATIENT
  Age: 42 Year
  Sex: Female

DRUGS (1)
  1. BREO ELLIPTA [Suspect]
     Active Substance: FLUTICASONE FUROATE\VILANTEROL TRIFENATATE
     Indication: Asthma
     Dosage: 1 PUFF(S), QD, 200/25MCG (EACH MORNING)
     Route: 055
     Dates: start: 2021

REACTIONS (5)
  - Dyspnoea [Unknown]
  - Cough [Unknown]
  - Drug ineffective [Not Recovered/Not Resolved]
  - Product storage error [Unknown]
  - Product complaint [Unknown]

NARRATIVE: CASE EVENT DATE: 20220601
